FAERS Safety Report 10827312 (Version 1)
Quarter: 2015Q1

REPORT INFORMATION
  Report Type: Spontaneous
  Country: DE (occurrence: None)
  Receive Date: 20150213
  Receipt Date: 20150213
  Transmission Date: 20150721
  Serious: Yes (Hospitalization)
  Sender: FDA-Public Use
  Company Number: 2015BI009827

PATIENT
  Age: 26 Year
  Sex: Female

DRUGS (1)
  1. TECFIDERA [Suspect]
     Active Substance: DIMETHYL FUMARATE
     Indication: MULTIPLE SCLEROSIS
     Route: 048
     Dates: start: 20140521, end: 20140529

REACTIONS (5)
  - Sensory disturbance [None]
  - Diplopia [None]
  - Nasopharyngitis [None]
  - Progressive multifocal leukoencephalopathy [None]
  - Multiple sclerosis relapse [None]
